FAERS Safety Report 8133100-3 (Version None)
Quarter: 2012Q1

REPORT INFORMATION
  Report Type: 
  Country: None (occurrence: None)
  Receive Date: 20120213
  Receipt Date: 20120209
  Transmission Date: 20120608
  Serious: Yes (Death, Hospitalization)
  Sender: FDA-Public Use
  Company Number: US-ABBOTT-12P-163-0903483-00

PATIENT
  Sex: Male

DRUGS (1)
  1. HUMIRA [Suspect]
     Indication: PSORIATIC ARTHROPATHY
     Dates: start: 20090101, end: 20110101

REACTIONS (8)
  - NASOPHARYNGITIS [None]
  - COUGH [None]
  - BLASTOMYCOSIS [None]
  - RENAL FAILURE CHRONIC [None]
  - DECREASED APPETITE [None]
  - BACTERIAL INFECTION [None]
  - MALAISE [None]
  - ASTHENIA [None]
